FAERS Safety Report 24115780 (Version 1)
Quarter: 2024Q3

REPORT INFORMATION
  Report Type: Spontaneous
  Country: US (occurrence: US)
  Receive Date: 20240721
  Receipt Date: 20240721
  Transmission Date: 20241017
  Serious: Yes (Other)
  Sender: DR REDDYS
  Company Number: US-DRL-USA-LIT/USA/24/0010467

PATIENT
  Sex: Female

DRUGS (14)
  1. CYCLOPHOSPHAMIDE [Suspect]
     Active Substance: CYCLOPHOSPHAMIDE
     Indication: Blau syndrome
     Dosage: ONE CYCLE OF CYCLOPHOSPHAMIDE PULSE THERAPY
  2. NAPROXEN [Suspect]
     Active Substance: NAPROXEN
     Indication: Blau syndrome
  3. METHOTREXATE [Suspect]
     Active Substance: METHOTREXATE
     Indication: Blau syndrome
  4. ETANERCEPT [Suspect]
     Active Substance: ETANERCEPT
     Indication: Blau syndrome
  5. TOCILIZUMAB [Suspect]
     Active Substance: TOCILIZUMAB
     Indication: Blau syndrome
  6. CANAKINUMAB [Suspect]
     Active Substance: CANAKINUMAB
     Indication: Blau syndrome
  7. RILONACEPT [Suspect]
     Active Substance: RILONACEPT
     Indication: Blau syndrome
  8. ANAKINRA [Suspect]
     Active Substance: ANAKINRA
     Indication: Blau syndrome
  9. GOLIMUMAB [Suspect]
     Active Substance: GOLIMUMAB
     Indication: Blau syndrome
  10. HUMAN IMMUNOGLOBULIN G [Suspect]
     Active Substance: HUMAN IMMUNOGLOBULIN G
     Indication: Blau syndrome
  11. MYCOPHENOLATE MOFETIL [Concomitant]
     Active Substance: MYCOPHENOLATE MOFETIL
     Indication: Blau syndrome
  12. TOFACITINIB [Concomitant]
     Active Substance: TOFACITINIB
     Indication: Blau syndrome
  13. PREDNISONE [Concomitant]
     Active Substance: PREDNISONE
     Indication: Blau syndrome
  14. INFLIXIMAB [Concomitant]
     Active Substance: INFLIXIMAB
     Indication: Blau syndrome

REACTIONS (3)
  - Meningitis aseptic [Unknown]
  - Drug ineffective for unapproved indication [Unknown]
  - Adverse event [Unknown]
